FAERS Safety Report 25729801 (Version 1)
Quarter: 2025Q3

REPORT INFORMATION
  Report Type: Spontaneous
  Country: US (occurrence: US)
  Receive Date: 20250827
  Receipt Date: 20250827
  Transmission Date: 20251021
  Serious: No
  Sender: UCB
  Company Number: US-UCBSA-2025028133

PATIENT

DRUGS (2)
  1. FINTEPLA [Interacting]
     Active Substance: FENFLURAMINE
     Indication: Product used for unknown indication
  2. STIRIPENTOL [Interacting]
     Active Substance: STIRIPENTOL
     Indication: Product used for unknown indication

REACTIONS (2)
  - Adverse drug reaction [Unknown]
  - Drug interaction [Unknown]
